FAERS Safety Report 19686801 (Version 1)
Quarter: 2021Q3

REPORT INFORMATION
  Report Type: Spontaneous
  Country: US (occurrence: US)
  Receive Date: 20210811
  Receipt Date: 20210811
  Transmission Date: 20211014
  Serious: Yes (Other)
  Sender: FDA-Public Use
  Company Number: US-MEDEXUS PHARMA, INC.-2021MED00059

PATIENT
  Age: 57 Year
  Sex: Female
  Weight: 61.22 kg

DRUGS (6)
  1. RASUVO [Suspect]
     Active Substance: METHOTREXATE SODIUM
     Indication: UVEITIS
  2. VITAMIN D [Concomitant]
     Active Substance: VITAMIN D NOS
  3. FOLIC ACID. [Concomitant]
     Active Substance: FOLIC ACID
  4. RASUVO [Suspect]
     Active Substance: METHOTREXATE SODIUM
     Indication: SARCOIDOSIS
     Dosage: 25 MG, 1X/WEEK INSIDE OF THE THIGHS AND LOWER TORSO
     Dates: start: 20210107
  5. MULTIVITAMIN [Concomitant]
     Active Substance: VITAMINS
  6. ^LAMITOL^ (PRESUMED LAMICTAL) [Concomitant]
     Dosage: 150 MG, 1X/DAY

REACTIONS (11)
  - Pain in extremity [Not Recovered/Not Resolved]
  - Peripheral swelling [Not Recovered/Not Resolved]
  - Furuncle [Not Recovered/Not Resolved]
  - Burning sensation [Not Recovered/Not Resolved]
  - Impaired healing [Not Recovered/Not Resolved]
  - Wound [Not Recovered/Not Resolved]
  - Insomnia [Not Recovered/Not Resolved]
  - Gait disturbance [Not Recovered/Not Resolved]
  - Wound secretion [Not Recovered/Not Resolved]
  - Wound complication [Not Recovered/Not Resolved]
  - Off label use [Not Recovered/Not Resolved]

NARRATIVE: CASE EVENT DATE: 2021
